FAERS Safety Report 23702790 (Version 2)
Quarter: 2024Q2

REPORT INFORMATION
  Report Type: Spontaneous
  Country: CH (occurrence: CH)
  Receive Date: 20240403
  Receipt Date: 20240625
  Transmission Date: 20240716
  Serious: Yes (Other)
  Sender: FDA-Public Use
  Company Number: CH-009507513-2403CHE009635

PATIENT
  Age: 23 Year
  Sex: Male
  Weight: 57 kg

DRUGS (3)
  1. PEMBROLIZUMAB [Suspect]
     Active Substance: PEMBROLIZUMAB
     Indication: Hodgkin^s disease recurrent
     Dosage: 100 MILLIGRAM, Q3W, 2 CYCLES TOTAL
     Route: 042
     Dates: start: 20211208, end: 20220129
  2. BRENTUXIMAB VEDOTIN [Concomitant]
     Active Substance: BRENTUXIMAB VEDOTIN
     Indication: Hodgkin^s disease recurrent
     Dosage: 18 G/KG FREQUENCY UNKNOWN, 2 CYCLES TOTAL
     Dates: start: 20211209, end: 20211225
  3. PREDNISONE [Concomitant]
     Active Substance: PREDNISONE
     Indication: Organising pneumonia
     Dosage: 20 MILLIGRAM, QD
     Route: 048
     Dates: start: 20211208

REACTIONS (4)
  - Graft versus host disease in skin [Recovered/Resolved]
  - Graft versus host disease in eye [Recovered/Resolved]
  - Graft versus host disease oral [Recovered/Resolved]
  - Off label use [Unknown]

NARRATIVE: CASE EVENT DATE: 20211208
